FAERS Safety Report 8351519-2 (Version None)
Quarter: 2012Q2

REPORT INFORMATION
  Report Type: 
  Country: None (occurrence: None)
  Receive Date: 20120511
  Receipt Date: 20120430
  Transmission Date: 20120825
  Serious: Yes (Other)
  Sender: FDA-Public Use
  Company Number: TR-AMGEN-TURSP2012028290

PATIENT
  Age: 64 Year
  Sex: Female

DRUGS (1)
  1. ENBREL [Suspect]
     Indication: RHEUMATOID ARTHRITIS
     Dosage: 50 MG, WEEKLY
     Route: 058
     Dates: start: 20110608, end: 20120416

REACTIONS (8)
  - JOINT SWELLING [None]
  - AMNESIA [None]
  - PAIN [None]
  - ANGIOGRAM [None]
  - FALL [None]
  - SCAN ABNORMAL [None]
  - WALKING DISABILITY [None]
  - OEDEMA PERIPHERAL [None]
